FAERS Safety Report 5988275-9 (Version None)
Quarter: 2008Q4

REPORT INFORMATION
  Report Type: 
  Country: None (occurrence: None)
  Receive Date: 20081210
  Receipt Date: 20081201
  Transmission Date: 20090506
  Serious: Yes (Hospitalization, Other)
  Sender: FDA-Public Use
  Company Number: BE-PFIZER INC-2008101292

PATIENT

DRUGS (1)
  1. CHAMPIX [Suspect]
     Route: 048
     Dates: start: 20071026

REACTIONS (4)
  - DEPRESSION [None]
  - HEADACHE [None]
  - SUICIDAL IDEATION [None]
  - VERTIGO [None]
